FAERS Safety Report 23495245 (Version 3)
Quarter: 2025Q1

REPORT INFORMATION
  Report Type: Spontaneous
  Country: JP (occurrence: JP)
  Receive Date: 20240207
  Receipt Date: 20250121
  Transmission Date: 20250409
  Serious: Yes (Death, Hospitalization, Other)
  Sender: EISAI
  Company Number: JP-Eisai-202213416_LEN-EC_P_1

PATIENT
  Age: 50 Year
  Sex: Female
  Weight: 50 kg

DRUGS (4)
  1. LENVATINIB [Suspect]
     Active Substance: LENVATINIB
     Indication: Endometrial cancer
     Route: 048
     Dates: end: 202311
  2. PEMBROLIZUMAB [Suspect]
     Active Substance: PEMBROLIZUMAB
     Indication: Endometrial cancer
     Route: 041
     Dates: end: 202311
  3. WARFARIN [Suspect]
     Active Substance: WARFARIN
     Indication: Mitral valve replacement
  4. AMLODIPINE [Concomitant]
     Active Substance: AMLODIPINE BESYLATE
     Indication: Hypertension

REACTIONS (4)
  - Malignant neoplasm progression [Fatal]
  - Thrombotic microangiopathy [Recovered/Resolved]
  - Genital haemorrhage [Recovered/Resolved]
  - Hypertension [Recovering/Resolving]
